FAERS Safety Report 13192152 (Version 3)
Quarter: 2017Q4

REPORT INFORMATION
  Report Type: Report from Study
  Country: US (occurrence: US)
  Receive Date: 20170207
  Receipt Date: 20171011
  Transmission Date: 20180320
  Serious: Yes (Other)
  Sender: FDA-Public Use
  Company Number: PHHO2017US002343

PATIENT
  Age: 62 Year
  Sex: Male
  Weight: 84.8 kg

DRUGS (9)
  1. BLINDED NO TREATMENT RECEIVED [Suspect]
     Active Substance: INVESTIGATIONAL PRODUCT
     Indication: ANAPLASTIC THYROID CANCER
     Dosage: 300 MG, QD
     Route: 048
     Dates: start: 20160607
  2. HYDROCODONE [Suspect]
     Active Substance: HYDROCODONE
     Indication: PAIN
  3. BLINDED PACLITAXEL [Suspect]
     Active Substance: PACLITAXEL
     Indication: ANAPLASTIC THYROID CANCER
     Dosage: 300 MG, QD
     Route: 048
     Dates: start: 20160607
  4. HYDROCODONE [Suspect]
     Active Substance: HYDROCODONE
     Indication: ODYNOPHAGIA
     Dosage: 15 ML, Q4H (7.5 MG/15 ML)
     Route: 062
     Dates: start: 20160613
  5. TYLENOL [Suspect]
     Active Substance: ACETAMINOPHEN
     Indication: PAIN
     Dosage: UNK
     Route: 062
     Dates: start: 201605
  6. ACETAMINOPHEN. [Suspect]
     Active Substance: ACETAMINOPHEN
     Indication: PAIN
  7. BLINDED PAZOPANIB [Suspect]
     Active Substance: PAZOPANIB
     Indication: ANAPLASTIC THYROID CANCER
     Dosage: 300 MG, QD
     Route: 048
     Dates: start: 20160607
  8. COMPARATOR PACLITAXEL [Suspect]
     Active Substance: PACLITAXEL
     Indication: ANAPLASTIC THYROID CANCER
     Dosage: 50 MG/M2, QW
     Route: 042
     Dates: start: 20160607
  9. ACETAMINOPHEN. [Suspect]
     Active Substance: ACETAMINOPHEN
     Indication: ODYNOPHAGIA
     Dosage: 15 ML, Q4H (325 MG/ML)
     Route: 062
     Dates: start: 20160523

REACTIONS (1)
  - Blood alkaline phosphatase increased [Recovered/Resolved]

NARRATIVE: CASE EVENT DATE: 20160613
